FAERS Safety Report 8485872-6 (Version None)
Quarter: 2012Q3

REPORT INFORMATION
  Report Type: 
  Country: None (occurrence: None)
  Receive Date: 20120703
  Receipt Date: 20120621
  Transmission Date: 20120928
  Serious: Yes (Hospitalization)
  Sender: FDA-Public Use
  Company Number: US-MYLANLABS-2012S1012830

PATIENT
  Age: 45 Year
  Sex: Male

DRUGS (1)
  1. VANCOMYCIN [Suspect]
     Indication: STAPHYLOCOCCAL INFECTION
     Route: 065

REACTIONS (1)
  - RENAL TUBULAR NECROSIS [None]
